FAERS Safety Report 9034376 (Version 1)
Quarter: 2013Q1

REPORT INFORMATION
  Report Type: Spontaneous
  Country: CA (occurrence: CA)
  Receive Date: 20130128
  Receipt Date: 20130128
  Transmission Date: 20140127
  Serious: Yes (Hospitalization, Other)
  Sender: FDA-Public Use
  Company Number: CA-AMGEN-CANSP2012064496

PATIENT
  Age: 41 Year
  Sex: Female

DRUGS (2)
  1. ENBREL [Suspect]
     Indication: ANKYLOSING SPONDYLITIS
     Dosage: UNK UNK, QWK
     Dates: start: 20090418, end: 20120531
  2. DICLOFENAC [Concomitant]
     Dosage: UNK

REACTIONS (6)
  - Dyspnoea [Recovered/Resolved]
  - Rash generalised [Recovered/Resolved]
  - Fibromyalgia [Not Recovered/Not Resolved]
  - Jaw disorder [Recovered/Resolved]
  - Haemorrhage [Recovered/Resolved]
  - Drug ineffective [Unknown]
